FAERS Safety Report 9932246 (Version 2)
Quarter: 2014Q1

REPORT INFORMATION
  Report Type: Report from Study
  Country: US (occurrence: US)
  Receive Date: 20140228
  Receipt Date: 20140228
  Transmission Date: 20141002
  Serious: No
  Sender: FDA-Public Use
  Company Number: US-ABBVIE-13P-163-1173147-00

PATIENT
  Age: 65 Year
  Sex: Male
  Weight: 94.43 kg

DRUGS (10)
  1. ANDROGEL [Suspect]
     Indication: TESTICULAR FAILURE
     Dosage: 2 PUMPS DAILY
     Route: 061
     Dates: start: 201205, end: 201310
  2. ANDROGEL [Suspect]
     Indication: BENIGN PROSTATIC HYPERPLASIA
     Dosage: 3 PUMPS DAILY
     Route: 061
     Dates: start: 201310
  3. SALT WATER SCRUB [Suspect]
     Indication: PRODUCT USED FOR UNKNOWN INDICATION
  4. BENICAR [Concomitant]
     Indication: HYPERTENSION
  5. CIALIS [Concomitant]
     Indication: ERECTILE DYSFUNCTION
  6. OMEPRAZOLE [Concomitant]
     Indication: PRODUCT USED FOR UNKNOWN INDICATION
  7. VITAMIN D [Concomitant]
     Indication: PRODUCT USED FOR UNKNOWN INDICATION
  8. VITAMIN C [Concomitant]
     Indication: PRODUCT USED FOR UNKNOWN INDICATION
  9. TERAZOSIN [Concomitant]
     Indication: HYPERTENSION
  10. TERAZOSIN [Concomitant]
     Indication: ERECTILE DYSFUNCTION

REACTIONS (6)
  - Drug administered at inappropriate site [Not Recovered/Not Resolved]
  - Application site pruritus [Not Recovered/Not Resolved]
  - Application site rash [Not Recovered/Not Resolved]
  - Rash [Recovered/Resolved]
  - Pruritus [Recovered/Resolved]
  - Blood testosterone decreased [Not Recovered/Not Resolved]
